FAERS Safety Report 7636223-8 (Version None)
Quarter: 2011Q3

REPORT INFORMATION
  Report Type: 
  Country: None (occurrence: None)
  Receive Date: 20110722
  Receipt Date: 20110722
  Transmission Date: 20111222
  Serious: Yes (Other)
  Sender: FDA-Public Use
  Company Number: None

PATIENT
  Sex: Female
  Weight: 49.8957 kg

DRUGS (1)
  1. RISPERIDONE [Suspect]
     Indication: HOSPITALISATION
     Dosage: 1  2 A DAY
     Dates: start: 20110608, end: 20110620

REACTIONS (16)
  - RHINORRHOEA [None]
  - HEADACHE [None]
  - DROOLING [None]
  - SKIN EXFOLIATION [None]
  - DYSARTHRIA [None]
  - WEIGHT INCREASED [None]
  - PALPITATIONS [None]
  - OEDEMA PERIPHERAL [None]
  - RESTLESSNESS [None]
  - BREAST DISCHARGE [None]
  - DIZZINESS [None]
  - SYNCOPE [None]
  - THIRST [None]
  - SLEEP TERROR [None]
  - HYPOAESTHESIA [None]
  - MOOD SWINGS [None]
